FAERS Safety Report 25605860 (Version 1)
Quarter: 2025Q3

REPORT INFORMATION
  Report Type: Spontaneous
  Country: GB (occurrence: GB)
  Receive Date: 20250725
  Receipt Date: 20250725
  Transmission Date: 20251021
  Serious: Yes (Other)
  Sender: AUROBINDO
  Company Number: GB-MHRA-MED-202507130029021470-PCVNR

PATIENT
  Age: 29 Year
  Sex: Male
  Weight: 65 kg

DRUGS (4)
  1. ACETAMINOPHEN [Suspect]
     Active Substance: ACETAMINOPHEN
     Indication: Restless legs syndrome
     Dosage: 150 MILLIGRAM, ONCE A DAY
     Route: 065
  2. CODEINE PHOSPHATE [Suspect]
     Active Substance: CODEINE PHOSPHATE
     Indication: Restless legs syndrome
     Dosage: 150 MILLIGRAM, ONCE A DAY
     Route: 065
  3. CAFFEINE [Suspect]
     Active Substance: CAFFEINE
     Indication: Restless legs syndrome
     Dosage: 150 MILLIGRAM, ONCE A DAY (...AT NIGHT)
     Route: 065
  4. DIPHENHYDRAMINE [Suspect]
     Active Substance: DIPHENHYDRAMINE
     Indication: Restless legs syndrome
     Dosage: 150 MILLIGRAM, ONCE A DAY (...AT NIGHT)
     Route: 065

REACTIONS (6)
  - Dysarthria [Recovered/Resolved]
  - Fatigue [Not Recovered/Not Resolved]
  - Lethargy [Not Recovered/Not Resolved]
  - Balance disorder [Recovered/Resolved]
  - Dizziness [Recovered/Resolved]
  - Dyspnoea [Recovered/Resolved]

NARRATIVE: CASE EVENT DATE: 20250711
